FAERS Safety Report 6760513-4 (Version None)
Quarter: 2010Q2

REPORT INFORMATION
  Report Type: 
  Country: None (occurrence: None)
  Receive Date: 20100608
  Receipt Date: 20100604
  Transmission Date: 20101027
  Serious: Yes (Death)
  Sender: FDA-Public Use
  Company Number: JP-ASTRAZENECA-2010SE25194

PATIENT
  Age: 77 Year
  Sex: Female

DRUGS (3)
  1. SYMBICORT [Suspect]
     Indication: ASTHMA
     Dosage: NUMBER OF SEPARATE DOSAGES UNKNOWN; 4 DF
     Route: 055
     Dates: start: 20100526, end: 20100531
  2. HOKUNALIN:TAPE [Concomitant]
     Dosage: DOSE UNKNOWN
     Route: 062
  3. SPIRIVA [Concomitant]
     Dosage: DOSE UNKNOWN
     Route: 055

REACTIONS (1)
  - SUDDEN DEATH [None]
